FAERS Safety Report 5105865-6 (Version None)
Quarter: 2006Q3

REPORT INFORMATION
  Report Type: 
  Country: None (occurrence: None)
  Receive Date: 20060915
  Receipt Date: 20060727
  Transmission Date: 20061208
  Serious: Yes (Life-Threatening, Hospitalization)
  Sender: FDA-Public Use
  Company Number: FR-GLAXOSMITHKLINE-B0432602A

PATIENT
  Age: 63 Year
  Sex: Female
  Weight: 57.5 kg

DRUGS (5)
  1. ARIXTRA [Suspect]
     Indication: PHLEBITIS
     Dosage: 7.5MG PER DAY
     Route: 058
     Dates: start: 20060509, end: 20060512
  2. CORDARONE [Concomitant]
  3. CORTANCYL [Concomitant]
  4. CISPLATIN [Concomitant]
     Dates: start: 20060509
  5. TAXOTERE [Concomitant]
     Dates: start: 20060509

REACTIONS (3)
  - DEEP VEIN THROMBOSIS [None]
  - DRUG INEFFECTIVE [None]
  - PULMONARY EMBOLISM [None]
